FAERS Safety Report 7503696-0 (Version None)
Quarter: 2011Q2

REPORT INFORMATION
  Report Type: 
  Country: None (occurrence: None)
  Receive Date: 20110525
  Receipt Date: 20110518
  Transmission Date: 20111010
  Serious: Yes (Other)
  Sender: FDA-Public Use
  Company Number: US-US-EMD SERONO, INC.-230982J10USA

PATIENT
  Sex: Female
  Weight: 67 kg

DRUGS (5)
  1. NORCO [Concomitant]
     Indication: PAIN
     Route: 065
  2. XANAX [Concomitant]
     Route: 065
     Dates: start: 19990101
  3. REBIF [Suspect]
     Indication: MULTIPLE SCLEROSIS
     Route: 058
     Dates: start: 20081105, end: 20100901
  4. OTHER UNSPECIFIED MEDICATIONS [Concomitant]
     Route: 065
  5. XANAX [Concomitant]

REACTIONS (6)
  - UTERINE LEIOMYOMA [None]
  - BENIGN BREAST NEOPLASM [None]
  - INCOHERENT [None]
  - PAIN [None]
  - CENTRAL NERVOUS SYSTEM LESION [None]
  - INJECTION SITE PAIN [None]
